FAERS Safety Report 16367617 (Version 1)
Quarter: 2019Q2

REPORT INFORMATION
  Report Type: Spontaneous
  Country: DE (occurrence: DE)
  Receive Date: 20190529
  Receipt Date: 20190529
  Transmission Date: 20190711
  Serious: Yes (Other)
  Sender: FDA-Public Use
  Company Number: DE-BAYER-2019-101597

PATIENT
  Age: 36 Year
  Sex: Female
  Weight: 62 kg

DRUGS (1)
  1. GADOVIST [Suspect]
     Active Substance: GADOBUTROL
     Indication: NUCLEAR MAGNETIC RESONANCE IMAGING
     Dosage: 7 ML, ONCE
     Dates: start: 20171029, end: 20171029

REACTIONS (11)
  - Headache [None]
  - Fatigue [None]
  - Vertigo [None]
  - Abdominal pain [None]
  - Arrhythmia [None]
  - Vomiting [None]
  - Muscle spasms [None]
  - Nausea [None]
  - Chills [None]
  - Pyrexia [None]
  - Alopecia [None]

NARRATIVE: CASE EVENT DATE: 2017
